FAERS Safety Report 11871410 (Version 1)
Quarter: 2015Q4

REPORT INFORMATION
  Report Type: Report from Study
  Country: US (occurrence: US)
  Receive Date: 20151228
  Receipt Date: 20151228
  Transmission Date: 20160305
  Serious: Yes (Death, Life-Threatening, Hospitalization)
  Sender: FDA-Public Use
  Company Number: US-009507513-1307USA011354

PATIENT
  Age: 48 Year
  Sex: Male
  Weight: 96.15 kg

DRUGS (15)
  1. ALEVE [Concomitant]
     Active Substance: NAPROXEN SODIUM
     Indication: MYALGIA
     Dosage: 1 TABLET DAILY, PRN
     Route: 048
     Dates: start: 201211
  2. OXALIPLATIN. [Concomitant]
     Active Substance: OXALIPLATIN
     Indication: COLORECTAL CANCER
     Dosage: 190 MG, QD
     Route: 042
     Dates: start: 20121008
  3. ADRUCIL [Concomitant]
     Active Substance: FLUOROURACIL
     Indication: COLORECTAL CANCER
     Dosage: 5376 MG DAILY, FORMULATION: CONTINUOUS INFUSION OVER 46 HOURS
     Route: 042
     Dates: start: 20121008
  4. HEPARIN [Suspect]
     Active Substance: HEPARIN SODIUM
     Indication: PULMONARY EMBOLISM
  5. ADRUCIL [Concomitant]
     Active Substance: FLUOROURACIL
     Indication: COLORECTAL CANCER
     Dosage: 896 MG, QD, FOMULATION: BOLUS
     Route: 042
     Dates: start: 20121008
  6. HEPARIN [Suspect]
     Active Substance: HEPARIN SODIUM
     Indication: DEEP VEIN THROMBOSIS
     Dosage: TOTAL DAILY DOSE: 25000 UNITS, CONTINUOUS
     Route: 042
     Dates: start: 20151021, end: 20151026
  7. VITAMINS (UNSPECIFIED) [Concomitant]
     Active Substance: VITAMINS
     Indication: ROUTINE HEALTH MAINTENANCE
     Dosage: 1 TABLET, QD
     Route: 048
     Dates: start: 20121101, end: 20151213
  8. BLINDED VARICELLA-ZOSTER VIRUS VACCINE INACTIVATED (OKA/MERCK) [Suspect]
     Active Substance: VARICELLA-ZOSTER VIRUS STRAIN OKA/MERCK LIVE ANTIGEN
     Indication: PROPHYLAXIS
     Route: 058
     Dates: start: 20130322, end: 20130322
  9. BLINDED VARICELLA-ZOSTER VIRUS VACCINE INACTIVATED (OKA/MERCK) [Suspect]
     Active Substance: VARICELLA-ZOSTER VIRUS STRAIN OKA/MERCK LIVE ANTIGEN
     Route: 058
     Dates: start: 20121221, end: 20121221
  10. BLINDED VARICELLA-ZOSTER VIRUS VACCINE INACTIVATED (OKA/MERCK) [Suspect]
     Active Substance: VARICELLA-ZOSTER VIRUS STRAIN OKA/MERCK LIVE ANTIGEN
     Route: 058
     Dates: start: 20130124, end: 20130124
  11. OXALIPLATIN. [Concomitant]
     Active Substance: OXALIPLATIN
     Indication: RECTAL CANCER
     Dosage: 200 MG, QD
     Route: 042
     Dates: start: 20121104, end: 20140128
  12. BLINDED VARICELLA-ZOSTER VIRUS VACCINE INACTIVATED (OKA/MERCK) [Suspect]
     Active Substance: VARICELLA-ZOSTER VIRUS STRAIN OKA/MERCK LIVE ANTIGEN
     Route: 058
     Dates: start: 20130222, end: 20130222
  13. SUDAFED [Concomitant]
     Active Substance: PSEUDOEPHEDRINE HYDROCHLORIDE
     Indication: OROPHARYNGEAL PAIN
     Dosage: UNK, PRN
     Route: 048
     Dates: start: 20121115
  14. SUDAFED [Concomitant]
     Active Substance: PSEUDOEPHEDRINE HYDROCHLORIDE
     Indication: RHINORRHOEA
  15. LIPITOR [Concomitant]
     Active Substance: ATORVASTATIN CALCIUM
     Indication: HYPERLIPIDAEMIA
     Dosage: 40 MG, QD
     Route: 048
     Dates: start: 20130124, end: 20151213

REACTIONS (10)
  - Gastrointestinal haemorrhage [Fatal]
  - Rectal cancer [Not Recovered/Not Resolved]
  - Small intestinal obstruction [Recovered/Resolved]
  - Deep vein thrombosis [Not Recovered/Not Resolved]
  - Pulmonary embolism [Not Recovered/Not Resolved]
  - Atrial fibrillation [Recovered/Resolved]
  - Gastrointestinal haemorrhage [Recovered/Resolved]
  - Neutropenic sepsis [Recovered/Resolved]
  - Acute kidney injury [Recovered/Resolved]
  - Rectal cancer [Recovered/Resolved]

NARRATIVE: CASE EVENT DATE: 20130709
